FAERS Safety Report 5934172-4 (Version None)
Quarter: 2008Q4

REPORT INFORMATION
  Report Type: 
  Country: None (occurrence: None)
  Receive Date: 20081029
  Receipt Date: 20081023
  Transmission Date: 20090506
  Serious: Yes (Other)
  Sender: FDA-Public Use
  Company Number: B0541155A

PATIENT
  Age: 80 Year
  Sex: Female

DRUGS (14)
  1. SEREVENT [Suspect]
     Indication: ASTHMA
     Dosage: 50MCG TWICE PER DAY
     Route: 055
     Dates: start: 20060610, end: 20060612
  2. DIART [Concomitant]
     Dosage: 30MG PER DAY
     Route: 048
  3. NORVASC [Concomitant]
     Route: 048
  4. KIPRES [Concomitant]
     Dosage: 10MG PER DAY
     Route: 048
  5. PERSANTINE [Concomitant]
     Route: 065
  6. MEVALOTIN [Concomitant]
     Dosage: 10MG PER DAY
     Route: 048
  7. RABEPRAZOLE SODIUM [Concomitant]
     Dosage: 10MG PER DAY
     Route: 048
  8. HERBESSER [Concomitant]
     Dosage: 90MG PER DAY
     Route: 048
     Dates: end: 20080327
  9. COMELIAN [Concomitant]
     Dosage: 150MG PER DAY
     Route: 048
     Dates: end: 20070327
  10. SOLANAX [Concomitant]
     Dosage: .4MG PER DAY
     Route: 048
  11. PURSENNID [Concomitant]
     Dosage: 24MG PER DAY
     Route: 048
  12. MUCOSOLVAN [Concomitant]
     Dosage: 45MG PER DAY
     Route: 048
  13. HOKUNALIN [Concomitant]
     Dosage: 2MG PER DAY
     Route: 062
  14. QVAR 40 [Concomitant]
     Route: 055
     Dates: start: 20060610

REACTIONS (3)
  - CARDIAC FAILURE [None]
  - OEDEMA PERIPHERAL [None]
  - SWELLING FACE [None]
